FAERS Safety Report 10522642 (Version 4)
Quarter: 2015Q3

REPORT INFORMATION
  Report Type: Report from Study
  Country: US (occurrence: US)
  Receive Date: 20141016
  Receipt Date: 20150909
  Transmission Date: 20151125
  Serious: Yes (Other)
  Sender: FDA-Public Use
  Company Number: US-SA-2014SA086946

PATIENT
  Sex: Female

DRUGS (2)
  1. AVONEX [Concomitant]
     Active Substance: INTERFERON BETA-1A
     Indication: MULTIPLE SCLEROSIS
     Dates: start: 20130801, end: 20140613
  2. AUBAGIO [Suspect]
     Active Substance: TERIFLUNOMIDE
     Indication: MULTIPLE SCLEROSIS
     Route: 048
     Dates: start: 20140613

REACTIONS (11)
  - Lower respiratory tract infection [Unknown]
  - Multiple sclerosis relapse [Unknown]
  - Pulmonary congestion [Unknown]
  - Malaise [Unknown]
  - Alopecia [Recovering/Resolving]
  - Hypertension [Unknown]
  - Pneumonia [Unknown]
  - Musculoskeletal pain [Unknown]
  - Nausea [Unknown]
  - Nasopharyngitis [Unknown]
  - Fibromyalgia [Unknown]

NARRATIVE: CASE EVENT DATE: 2014
